FAERS Safety Report 23681720 (Version 1)
Quarter: 2024Q1

REPORT INFORMATION
  Report Type: Report from Study
  Country: CA (occurrence: CA)
  Receive Date: 20240328
  Receipt Date: 20240328
  Transmission Date: 20240410
  Serious: Yes (Other)
  Sender: FDA-Public Use
  Company Number: CA-JAMP PHARMA CORPORATION-2024-JAM-CA-00423

PATIENT
  Age: 30 Year
  Sex: Female

DRUGS (1)
  1. SIMLANDI [Suspect]
     Active Substance: ADALIMUMAB-RYVK
     Indication: Crohn^s disease
     Dosage: 80MG, WEEKLY (40MG X 2)
     Route: 058
     Dates: start: 20230630

REACTIONS (7)
  - Crohn^s disease [Not Recovered/Not Resolved]
  - General physical health deterioration [Unknown]
  - Abdominal pain [Unknown]
  - Diarrhoea [Unknown]
  - Product dose omission issue [Unknown]
  - Product dispensing issue [Unknown]
  - Incorrect dose administered [Unknown]

NARRATIVE: CASE EVENT DATE: 20231101
